FAERS Safety Report 21366039 (Version 1)
Quarter: 2022Q3

REPORT INFORMATION
  Report Type: Spontaneous
  Country: US (occurrence: US)
  Receive Date: 20220922
  Receipt Date: 20220922
  Transmission Date: 20221026
  Serious: No
  Sender: FDA-Public Use
  Company Number: US-FreseniusKabi-FK202212771

PATIENT
  Age: 76 Year
  Sex: Male
  Weight: 83.2 kg

DRUGS (1)
  1. HEPARIN SODIUM [Suspect]
     Active Substance: HEPARIN SODIUM
     Indication: Product used for unknown indication
     Dosage: 22,000 UNITS TOTAL?DIVIDED DOSES OVER 2 HOURS (1159?1403)
     Route: 042
     Dates: start: 20220817

REACTIONS (1)
  - Therapeutic product effect decreased [Unknown]

NARRATIVE: CASE EVENT DATE: 20220817
